APPROVED DRUG PRODUCT: DILANTIN-125
Active Ingredient: PHENYTOIN
Strength: 125MG/5ML
Dosage Form/Route: SUSPENSION;ORAL
Application: N008762 | Product #001 | TE Code: AB
Applicant: VIATRIS SPECIALTY LLC
Approved: Approved Prior to Jan 1, 1982 | RLD: Yes | RS: Yes | Type: RX